FAERS Safety Report 6790585-2 (Version None)
Quarter: 2010Q2

REPORT INFORMATION
  Report Type: 
  Country: None (occurrence: None)
  Receive Date: 20100520
  Receipt Date: 20090618
  Transmission Date: 20101027
  Serious: Yes (Disabling, Other)
  Sender: FDA-Public Use
  Company Number: 2009229149

PATIENT
  Age: 64 Year
  Sex: Female
  Weight: 68 kg

DRUGS (9)
  1. PROVERA [Suspect]
     Indication: HORMONE REPLACEMENT THERAPY
     Dosage: 2.5 MG, ORAL
     Route: 048
     Dates: start: 19911001, end: 19990101
  2. PREMARIN [Suspect]
     Indication: HORMONE REPLACEMENT THERAPY
     Dosage: 0.3 MG ; 0.625 MG ; 0.3 MG
     Dates: start: 19900101, end: 19911001
  3. PREMARIN [Suspect]
     Indication: HORMONE REPLACEMENT THERAPY
     Dosage: 0.3 MG ; 0.625 MG ; 0.3 MG
     Dates: start: 19911001, end: 19951201
  4. PREMARIN [Suspect]
     Indication: HORMONE REPLACEMENT THERAPY
     Dosage: 0.3 MG ; 0.625 MG ; 0.3 MG
     Dates: start: 19951201, end: 19990101
  5. PREMPRO [Suspect]
     Indication: HORMONE REPLACEMENT THERAPY
     Dosage: 0.625/ 2.5MG ; 0.625/ 5MG
     Dates: start: 19990101, end: 20000101
  6. PREMPRO [Suspect]
     Indication: HORMONE REPLACEMENT THERAPY
     Dosage: 0.625/ 2.5MG ; 0.625/ 5MG
     Dates: start: 20000101, end: 20000101
  7. METOPROLOL SUCCINATE [Concomitant]
  8. HYDROCHLOROTHIAZIDE [Concomitant]
  9. RAMIPRIL [Concomitant]

REACTIONS (1)
  - BREAST CANCER [None]
